FAERS Safety Report 25918800 (Version 2)
Quarter: 2025Q4

REPORT INFORMATION
  Report Type: Spontaneous
  Country: EU (occurrence: EU)
  Receive Date: 20251014
  Receipt Date: 20251020
  Transmission Date: 20260118
  Serious: Yes (Death, Hospitalization, Other)
  Sender: ABBVIE
  Company Number: EU-JNJFOC-20251008166

PATIENT
  Age: 60 Year
  Sex: Male

DRUGS (1)
  1. IMBRUVICA [Suspect]
     Active Substance: IBRUTINIB
     Indication: Chronic lymphocytic leukaemia
     Route: 065

REACTIONS (9)
  - Legionella infection [Fatal]
  - Varicella zoster virus infection [Unknown]
  - Endocarditis [Unknown]
  - Febrile neutropenia [Unknown]
  - Anal abscess [Unknown]
  - Erysipelas [Unknown]
  - Pulmonary embolism [Unknown]
  - Multiple organ dysfunction syndrome [Unknown]
  - Septic shock [Unknown]
